FAERS Safety Report 10042873 (Version 2)
Quarter: 2014Q1

REPORT INFORMATION
  Report Type: Report from Study
  Country: US (occurrence: US)
  Receive Date: 20140327
  Receipt Date: 20140327
  Transmission Date: 20141002
  Serious: Yes (Other)
  Sender: FDA-Public Use
  Company Number: US-BRISTOL-MYERS SQUIBB COMPANY-19576263

PATIENT
  Age: 50 Year
  Sex: Female
  Weight: 43.54 kg

DRUGS (7)
  1. ABATACEPT SUBQ INJECTION 125MG/ML [Suspect]
     Indication: RHEUMATOID ARTHRITIS
     Dosage: GIVEN 1 MONTH ?LAST NIGHT?LAST DOSE:DEC13
     Route: 058
  2. LEVOTHYROXINE [Concomitant]
  3. PREMARIN [Concomitant]
     Dosage: 1DF=0.45 UNIT NOS
  4. LOMOTIL [Concomitant]
     Dosage: 1DF=2.5,2-3TIMES
  5. BAYER ASPIRIN [Concomitant]
  6. VITAMIN B12 [Concomitant]
     Dosage: INJECTION
  7. HYDROCODONE [Concomitant]
     Dosage: BACK INJECTIONS

REACTIONS (1)
  - Gastrointestinal disorder [Unknown]
